FAERS Safety Report 11853790 (Version 1)
Quarter: 2015Q4

REPORT INFORMATION
  Report Type: Report from Study
  Country: DE (occurrence: DE)
  Receive Date: 20151219
  Receipt Date: 20151219
  Transmission Date: 20160305
  Serious: Yes (Hospitalization)
  Sender: FDA-Public Use
  Company Number: DE-009507513-1512DEU009502

PATIENT
  Age: 69 Year
  Sex: Male
  Weight: 62 kg

DRUGS (9)
  1. PANTOPRAZOLE SODIUM. [Concomitant]
     Active Substance: PANTOPRAZOLE SODIUM
     Dosage: 40 MG, UNK
     Dates: start: 20150916
  2. TEMSIROLIMUS [Suspect]
     Active Substance: TEMSIROLIMUS
     Dosage: 25 MG/INFUSION, IN EACH CYCLE ON DAY 1 AND 8
     Dates: start: 20150916
  3. CISPLATIN. [Suspect]
     Active Substance: CISPLATIN
     Dosage: 507 MG, UNKNOWN
     Dates: start: 20150918
  4. EMEND [Concomitant]
     Active Substance: APREPITANT
     Dosage: 125/80/80 MG PER DAY
     Dates: start: 20151028, end: 20151030
  5. DEXAMETHASONE. [Suspect]
     Active Substance: DEXAMETHASONE
     Dosage: 40 MG, UNKNOWN
     Dates: start: 20150918
  6. RITUXIMAB [Suspect]
     Active Substance: RITUXIMAB
     Dosage: 675 MG, UNKNOWN
     Dates: start: 20150917
  7. CARBOPLATIN. [Suspect]
     Active Substance: CARBOPLATIN
     Dosage: 507 MG, UNKNOWN
     Dates: start: 20150918
  8. GRANISETRON [Concomitant]
     Active Substance: GRANISETRON
     Dosage: 1 MG, PRN
     Route: 042
     Dates: start: 20151028
  9. CYTARABINE. [Suspect]
     Active Substance: CYTARABINE
     Dosage: TOTAL DOSE REPORTED AS 3800 MG
     Dates: start: 20150909

REACTIONS (1)
  - Decreased appetite [Recovered/Resolved]

NARRATIVE: CASE EVENT DATE: 20151102
